FAERS Safety Report 7443159-4 (Version None)
Quarter: 2011Q2

REPORT INFORMATION
  Report Type: 
  Country: None (occurrence: None)
  Receive Date: 20110428
  Receipt Date: 20110422
  Transmission Date: 20111010
  Serious: Yes (Hospitalization)
  Sender: FDA-Public Use
  Company Number: A0924213A

PATIENT
  Age: 82 Year
  Sex: Female

DRUGS (7)
  1. FLOVENT [Suspect]
     Indication: ASTHMA
     Dosage: 1PUFF TWICE PER DAY
     Route: 055
     Dates: start: 20110401
  2. ALBUTEROL [Suspect]
     Route: 042
     Dates: start: 20110101
  3. DIGOXIN [Concomitant]
  4. CARTIA XT [Concomitant]
  5. CATAPRES [Concomitant]
  6. LIPITOR [Concomitant]
  7. ACCUPRIL [Concomitant]

REACTIONS (9)
  - HEART RATE IRREGULAR [None]
  - DYSKINESIA [None]
  - ASTHENIA [None]
  - ADVERSE DRUG REACTION [None]
  - DRUG INEFFECTIVE [None]
  - BLOOD PRESSURE FLUCTUATION [None]
  - OVERDOSE [None]
  - CARDIAC DISORDER [None]
  - DYSPNOEA [None]
